FAERS Safety Report 16478118 (Version 2)
Quarter: 2019Q2

REPORT INFORMATION
  Report Type: Spontaneous
  Country: HU (occurrence: HU)
  Receive Date: 20190626
  Receipt Date: 20190630
  Transmission Date: 20190711
  Serious: Yes (Other)
  Sender: FDA-Public Use
  Company Number: HU-ABBVIE-19K-076-2830357-00

PATIENT
  Age: 42 Year
  Sex: Male

DRUGS (2)
  1. HUMIRA [Suspect]
     Active Substance: ADALIMUMAB
     Indication: ANKYLOSING SPONDYLITIS
     Route: 058
     Dates: start: 2016
  2. HUMIRA [Suspect]
     Active Substance: ADALIMUMAB
     Route: 058
     Dates: start: 201711, end: 20190614

REACTIONS (10)
  - Pain in extremity [Recovered/Resolved]
  - Phlebitis [Unknown]
  - Chest pain [Unknown]
  - Vasodilatation [Recovered/Resolved]
  - Fibrin D dimer increased [Unknown]
  - Vasculitis [Not Recovered/Not Resolved]
  - Vasodilatation [Unknown]
  - Pain in extremity [Unknown]
  - Thrombophlebitis superficial [Unknown]
  - Vasculitis [Unknown]

NARRATIVE: CASE EVENT DATE: 201905
